FAERS Safety Report 5312606-6 (Version None)
Quarter: 2007Q2

REPORT INFORMATION
  Report Type: 
  Country: None (occurrence: None)
  Receive Date: 20070430
  Receipt Date: 20061020
  Transmission Date: 20071010
  Serious: Yes (Other)
  Sender: FDA-Public Use
  Company Number: 2006UW20346

PATIENT
  Sex: Female

DRUGS (1)
  1. NEXIUM [Suspect]
     Route: 048

REACTIONS (22)
  - ARTHRALGIA [None]
  - ARTHRITIS [None]
  - BACK PAIN [None]
  - BLOOD PRESSURE [None]
  - CONSTIPATION [None]
  - COUGH [None]
  - DEPRESSION [None]
  - EAR PAIN [None]
  - HAEMORRHAGE [None]
  - HOT FLUSH [None]
  - HYPERAESTHESIA [None]
  - HYPERHIDROSIS [None]
  - INSOMNIA [None]
  - MALAISE [None]
  - OEDEMA PERIPHERAL [None]
  - PHARYNGOLARYNGEAL PAIN [None]
  - POLLAKIURIA [None]
  - SINUS DISORDER [None]
  - SLEEP DISORDER [None]
  - SOMNOLENCE [None]
  - SWELLING [None]
  - SWELLING FACE [None]
